FAERS Safety Report 15779308 (Version 3)
Quarter: 2019Q3

REPORT INFORMATION
  Report Type: Spontaneous
  Country: CA (occurrence: CA)
  Receive Date: 20190101
  Receipt Date: 20190830
  Transmission Date: 20191004
  Serious: Yes (Life-Threatening, Hospitalization, Other)
  Sender: FDA-Public Use
  Company Number: CA-ICU MEDICAL, INC.-ICU2018CA00238

PATIENT

DRUGS (13)
  1. 50% DEXTROSE INJECTION [Suspect]
     Active Substance: DEXTROSE
     Indication: DISEASE RECURRENCE
  2. GLUCOSE [Suspect]
     Active Substance: DEXTROSE
     Dosage: 50 MILLILITER
     Route: 042
  3. OCTREOTIDE. [Concomitant]
     Active Substance: OCTREOTIDE
     Indication: HYPOGLYCAEMIA
     Dosage: 50 MICROGRAM (1 EVERY 6 HOURS)
     Route: 058
  4. NOVORAPID [Suspect]
     Active Substance: INSULIN ASPART
     Indication: SUICIDE ATTEMPT
     Dosage: 300 INTERNATIONAL UNIT
     Route: 058
  5. NOVORAPID [Suspect]
     Active Substance: INSULIN ASPART
     Indication: INTENTIONAL OVERDOSE
  6. ZOPICLONE [Suspect]
     Active Substance: ZOPICLONE
     Indication: SUICIDE ATTEMPT
     Dosage: 45 MILLIGRAM
     Route: 048
  7. ZOPICLONE [Suspect]
     Active Substance: ZOPICLONE
     Indication: SUICIDAL IDEATION
  8. 50% DEXTROSE INJECTION [Suspect]
     Active Substance: DEXTROSE
     Indication: HYPOGLYCAEMIA
     Dosage: 50 MILLILITER
     Route: 042
  9. GLUCOSE [Suspect]
     Active Substance: DEXTROSE
     Indication: PRODUCT USED FOR UNKNOWN INDICATION
     Dosage: 2000 MILLILITER
     Route: 042
  10. CLONAZEPAM. [Suspect]
     Active Substance: CLONAZEPAM
     Indication: SUICIDAL IDEATION
     Dosage: 2.0 MILLIGRAM
     Route: 048
  11. NOVORAPID [Suspect]
     Active Substance: INSULIN ASPART
     Indication: SUICIDAL IDEATION
  12. 10% DEXTROSE INJECTION [Suspect]
     Active Substance: DEXTROSE
     Indication: HYPOGLYCAEMIA
     Dosage: UNK
     Route: 042
  13. GLUCOSE [Suspect]
     Active Substance: DEXTROSE
     Dosage: 12 DOSAGE FORM
     Route: 042

REACTIONS (11)
  - Lethargy [Recovered/Resolved]
  - Somnolence [Recovered/Resolved]
  - Intentional overdose [Recovered/Resolved]
  - Hyperhidrosis [Recovered/Resolved]
  - Blood pressure decreased [Recovered/Resolved]
  - Oedema peripheral [Recovered/Resolved]
  - Ataxia [Recovered/Resolved]
  - Suicide attempt [Recovered/Resolved]
  - Blood potassium decreased [Recovered/Resolved]
  - Drug ineffective [Recovering/Resolving]
  - Hypoglycaemia [Recovered/Resolved]
